FAERS Safety Report 17070703 (Version 1)
Quarter: 2019Q4

REPORT INFORMATION
  Report Type: Spontaneous
  Country: AU (occurrence: AU)
  Receive Date: 20191125
  Receipt Date: 20191125
  Transmission Date: 20200122
  Serious: Yes (Hospitalization)
  Sender: FDA-Public Use
  Company Number: AU-AMERICAN REGENT INC-2019002590

PATIENT
  Age: 83 Year
  Sex: Female

DRUGS (2)
  1. FERINJECT [Suspect]
     Active Substance: FERRIC CARBOXYMALTOSE
     Indication: PRODUCT USED FOR UNKNOWN INDICATION
     Dosage: UNK
     Route: 042
     Dates: start: 20191107
  2. FERROSIG [Suspect]
     Active Substance: IRON POLYMALTOSE
     Indication: PRODUCT USED FOR UNKNOWN INDICATION
     Dosage: UNK
     Route: 065
     Dates: start: 20191112

REACTIONS (2)
  - Medication error [Unknown]
  - Hospitalisation [Unknown]

NARRATIVE: CASE EVENT DATE: 201911
